FAERS Safety Report 5085171-9 (Version None)
Quarter: 2006Q3

REPORT INFORMATION
  Report Type: 
  Country: None (occurrence: None)
  Receive Date: 20060817
  Receipt Date: 20060801
  Transmission Date: 20061208
  Serious: Yes (Hospitalization)
  Sender: FDA-Public Use
  Company Number: 2005BI022010

PATIENT
  Sex: Male

DRUGS (12)
  1. ZEVALIN [Suspect]
     Indication: B-CELL LYMPHOMA
     Dosage: 5.0 MCI;1X;IV
     Route: 042
     Dates: start: 20050921, end: 20050921
  2. ZEVALIN [Suspect]
     Indication: B-CELL LYMPHOMA
     Dosage: 26.8 MCI;1X;IV
     Route: 042
     Dates: start: 20050928, end: 20050928
  3. RITUXIMAB [Concomitant]
  4. CARMUSTINE [Concomitant]
  5. ETOPOSIDE [Concomitant]
  6. CYTARABINE [Concomitant]
  7. MELPHALAN [Concomitant]
  8. ACV [Concomitant]
  9. BACTRIM [Concomitant]
  10. NEXIUM [Concomitant]
  11. AZITHROMYCIN [Concomitant]
  12. ROBITUSSIN [Concomitant]

REACTIONS (5)
  - CARDIAC MURMUR [None]
  - COUGH [None]
  - PYREXIA [None]
  - STEM CELL TRANSPLANT [None]
  - TACHYCARDIA [None]
